FAERS Safety Report 5192402-3 (Version None)
Quarter: 2006Q4

REPORT INFORMATION
  Report Type: 
  Country: None (occurrence: None)
  Receive Date: 20061227
  Receipt Date: 20061219
  Transmission Date: 20070319
  Serious: Yes (Hospitalization)
  Sender: FDA-Public Use
  Company Number: BR-PFIZER INC-2006154811

PATIENT
  Sex: Male

DRUGS (3)
  1. VIAGRA [Suspect]
     Indication: ERECTILE DYSFUNCTION
     Route: 048
  2. CIPROFLOXACIN [Concomitant]
     Route: 048
     Dates: start: 20050101, end: 20061218
  3. CELEBRA [Concomitant]
     Route: 048
     Dates: start: 20050101, end: 20061218

REACTIONS (2)
  - BIOPSY PROSTATE ABNORMAL [None]
  - PROSTATIC OPERATION [None]
